FAERS Safety Report 5372861-3 (Version None)
Quarter: 2007Q2

REPORT INFORMATION
  Report Type: 
  Country: None (occurrence: None)
  Receive Date: 20070626
  Receipt Date: 20070613
  Transmission Date: 20071010
  Serious: Yes (Hospitalization)
  Sender: FDA-Public Use
  Company Number: 107#03#2007-02210

PATIENT
  Age: 37 Year
  Sex: Female

DRUGS (4)
  1. MIRTAZAPINE [Suspect]
     Indication: DRUG USE FOR UNKNOWN INDICATION
     Dosage: 45 MG
  2. AMANTADINE HCL [Suspect]
     Indication: DRUG USE FOR UNKNOWN INDICATION
     Dosage: 300 MG
  3. FUROSOMIDE (FUROSOMIDE) [Concomitant]
  4. TIZANIDINE HCL [Concomitant]

REACTIONS (6)
  - AGGRESSION [None]
  - HALLUCINATION, AUDITORY [None]
  - HALLUCINATION, VISUAL [None]
  - JEALOUS DELUSION [None]
  - PSYCHOTIC DISORDER [None]
  - TREMOR [None]
